FAERS Safety Report 8339475-4 (Version None)
Quarter: 2012Q2

REPORT INFORMATION
  Report Type: 
  Country: None (occurrence: None)
  Receive Date: 20120507
  Receipt Date: 20120425
  Transmission Date: 20120825
  Serious: Yes (Other)
  Sender: FDA-Public Use
  Company Number: PHHY2011DE099412

PATIENT
  Sex: Male
  Weight: 101 kg

DRUGS (1)
  1. SANDIMMUNE [Suspect]
     Indication: PROPHYLAXIS AGAINST TRANSPLANT REJECTION
     Dosage: 60 MG BID
     Route: 048
     Dates: start: 20030729

REACTIONS (13)
  - RENAL LYMPHOCELE [None]
  - GLOMERULONEPHRITIS CHRONIC [None]
  - ATRIAL FIBRILLATION [None]
  - CORONARY ARTERY DISEASE [None]
  - PERIPHERAL ARTERIAL OCCLUSIVE DISEASE [None]
  - BOWENOID PAPULOSIS [None]
  - MELANOCYTIC NAEVUS [None]
  - HYPOTHYROIDISM [None]
  - RENAL FAILURE CHRONIC [None]
  - ATRIOVENTRICULAR BLOCK SECOND DEGREE [None]
  - STAPHYLOCOCCAL SEPSIS [None]
  - PROSTATE CANCER [None]
  - BASAL CELL CARCINOMA [None]
